FAERS Safety Report 8152177-2 (Version None)
Quarter: 2012Q1

REPORT INFORMATION
  Report Type: 
  Country: None (occurrence: None)
  Receive Date: 20120214
  Receipt Date: 20120206
  Transmission Date: 20120608
  Serious: No
  Sender: FDA-Public Use
  Company Number: ADR-2012-00299

PATIENT

DRUGS (1)
  1. BACLOFEN [Suspect]

REACTIONS (3)
  - INCORRECT ROUTE OF DRUG ADMINISTRATION [None]
  - IMPLANT SITE EFFUSION [None]
  - DEVICE BREAKAGE [None]
